FAERS Safety Report 14558957 (Version 1)
Quarter: 2018Q1

REPORT INFORMATION
  Report Type: Spontaneous
  Country: US (occurrence: US)
  Receive Date: 20180221
  Receipt Date: 20180221
  Transmission Date: 20180509
  Serious: Yes (Hospitalization, Other)
  Sender: FDA-Public Use
  Company Number: US-SAOL THERAPEUTICS-2017SAO03551

PATIENT
  Age: 55 Year
  Sex: Male
  Weight: 81.63 kg

DRUGS (2)
  1. DILAUDID [Concomitant]
     Active Substance: HYDROMORPHONE HYDROCHLORIDE
     Dosage: 4 MG, AS NEEDED
  2. COMPOUNDED BACLOFEN [Suspect]
     Active Substance: BACLOFEN
     Indication: MUSCLE SPASTICITY
     Dosage: UNK
     Route: 037
     Dates: start: 20171128

REACTIONS (9)
  - Hot flush [Unknown]
  - Muscle spasms [Unknown]
  - Pruritus generalised [Unknown]
  - Haemorrhage [Unknown]
  - Nasopharyngitis [Unknown]
  - Pain [Unknown]
  - Muscle spasticity [Unknown]
  - Therapy non-responder [Unknown]
  - Blood pressure increased [Unknown]

NARRATIVE: CASE EVENT DATE: 201712
